FAERS Safety Report 15373033 (Version 1)
Quarter: 2018Q3

REPORT INFORMATION
  Report Type: Report from Study
  Country: US (occurrence: US)
  Receive Date: 20180912
  Receipt Date: 20180912
  Transmission Date: 20181010
  Serious: Yes (Other)
  Sender: FDA-Public Use
  Company Number: US-EMD SERONO-E2B_90057973

PATIENT
  Sex: Male

DRUGS (1)
  1. REBIF [Suspect]
     Active Substance: INTERFERON BETA-1A
     Indication: MULTIPLE SCLEROSIS
     Route: 058
     Dates: start: 20091230

REACTIONS (5)
  - Cerebral disorder [Unknown]
  - Memory impairment [Unknown]
  - Nephrolithiasis [Unknown]
  - Stress [Unknown]
  - Anxiety disorder [Unknown]

NARRATIVE: CASE EVENT DATE: 2018
